FAERS Safety Report 9838292 (Version 2)
Quarter: 2014Q1

REPORT INFORMATION
  Report Type: Spontaneous
  Country: US (occurrence: US)
  Receive Date: 20140123
  Receipt Date: 20140303
  Transmission Date: 20141002
  Serious: No
  Sender: FDA-Public Use
  Company Number: US-GILEAD-2014-0092763

PATIENT
  Sex: Female

DRUGS (7)
  1. LETAIRIS [Suspect]
     Indication: PULMONARY ARTERIAL HYPERTENSION
     Dosage: 5 MG, QD
     Route: 065
     Dates: start: 20131118
  2. LETAIRIS [Suspect]
     Indication: LUNG NEOPLASM MALIGNANT
     Dosage: 5 MG, QD
     Route: 065
     Dates: start: 20140116
  3. LETAIRIS [Suspect]
     Indication: BRONCHIECTASIS
  4. LETAIRIS [Suspect]
     Indication: ATRIAL SEPTAL DEFECT
  5. LETAIRIS [Suspect]
     Indication: UNEVALUABLE EVENT
  6. ADCIRCA [Concomitant]
  7. OXYGEN [Concomitant]

REACTIONS (7)
  - Oxygen saturation decreased [Unknown]
  - Oxygen consumption increased [Unknown]
  - Malaise [Unknown]
  - Constipation [Unknown]
  - Oedema [Unknown]
  - Flushing [Unknown]
  - Dyspnoea [Unknown]
